FAERS Safety Report 21794026 (Version 1)
Quarter: 2022Q4

REPORT INFORMATION
  Report Type: Spontaneous
  Country: US (occurrence: None)
  Receive Date: 20221228
  Receipt Date: 20221228
  Transmission Date: 20230112
  Serious: Yes (Death)
  Sender: FDA-Public Use
  Company Number: None

PATIENT
  Age: 85 Year
  Sex: Male
  Weight: 92.9 kg

DRUGS (1)
  1. ELITEK [Suspect]
     Active Substance: RASBURICASE
     Indication: Hyperuricaemia
     Route: 040
     Dates: start: 20221213, end: 20221213

REACTIONS (3)
  - Methaemoglobinaemia [None]
  - Acidosis [None]
  - Cardiac arrest [None]

NARRATIVE: CASE EVENT DATE: 20221214
